FAERS Safety Report 6408296-1 (Version None)
Quarter: 2009Q4

REPORT INFORMATION
  Report Type: 
  Country: None (occurrence: None)
  Receive Date: 20091021
  Receipt Date: 20091012
  Transmission Date: 20100525
  Serious: Yes (Other)
  Sender: FDA-Public Use
  Company Number: US-JNJFOC-20091004617

PATIENT
  Age: 44 Year
  Sex: Female

DRUGS (2)
  1. DURAGESIC-100 [Suspect]
     Indication: DRUG USE FOR UNKNOWN INDICATION
     Route: 062
  2. OPIOIDS [Concomitant]
     Indication: PAIN

REACTIONS (6)
  - ASTHENIA [None]
  - BEDRIDDEN [None]
  - DIZZINESS [None]
  - INAPPROPRIATE SCHEDULE OF DRUG ADMINISTRATION [None]
  - ORTHOSTATIC HYPOTENSION [None]
  - PRODUCT QUALITY ISSUE [None]
